FAERS Safety Report 12313006 (Version 1)
Quarter: 2016Q2

REPORT INFORMATION
  Report Type: Spontaneous
  Country: US (occurrence: US)
  Receive Date: 20160428
  Receipt Date: 20160428
  Transmission Date: 20160815
  Serious: Yes (Hospitalization)
  Sender: FDA-Public Use
  Company Number: US-ROCHE-1747544

PATIENT
  Sex: Male

DRUGS (1)
  1. ZELBORAF [Suspect]
     Active Substance: VEMURAFENIB
     Indication: MALIGNANT MELANOMA
     Dosage: 240 MG, 4 TABLETS BY MOUTH TWICE DAILY
     Route: 048
     Dates: start: 20160409, end: 20160418

REACTIONS (3)
  - Rash [Not Recovered/Not Resolved]
  - Abasia [Not Recovered/Not Resolved]
  - Cardiac disorder [Unknown]
